FAERS Safety Report 23411669 (Version 1)
Quarter: 2024Q1

REPORT INFORMATION
  Report Type: Spontaneous
  Country: BR (occurrence: BR)
  Receive Date: 20240117
  Receipt Date: 20240117
  Transmission Date: 20240410
  Serious: Yes (Other)
  Sender: FDA-Public Use
  Company Number: BR-GUERBET / GUERBET PRODUTOS RADIOLOGICOS LTDA-BR-20240013

PATIENT
  Age: 66 Year
  Sex: Female
  Weight: 52 kg

DRUGS (1)
  1. OPTIRAY [Suspect]
     Active Substance: IOVERSOL
     Indication: Product used for unknown indication
     Route: 042

REACTIONS (5)
  - Angioedema [Recovered/Resolved]
  - Papule [Recovered/Resolved]
  - Dysphagia [Recovered/Resolved]
  - Apraxia [Recovered/Resolved]
  - Pruritus [Recovered/Resolved]
